FAERS Safety Report 6274613-9 (Version None)
Quarter: 2009Q3

REPORT INFORMATION
  Report Type: 
  Country: None (occurrence: None)
  Receive Date: 20090717
  Receipt Date: 20090709
  Transmission Date: 20100115
  Serious: Yes (Hospitalization)
  Sender: FDA-Public Use
  Company Number: SPV1-2009-01431

PATIENT
  Age: 32 Year
  Sex: Male
  Weight: 74.8 kg

DRUGS (2)
  1. FOSRENOL [Suspect]
     Indication: DIALYSIS
     Dosage: 1000 MG, 3X/DAY, TID; ORAL
     Route: 048
     Dates: start: 20030223
  2. FOSRENOL [Suspect]
     Indication: HYPERPHOSPHATAEMIA
     Dosage: 1000 MG, 3X/DAY, TID; ORAL
     Route: 048
     Dates: start: 20030223

REACTIONS (2)
  - BLOOD PHOSPHORUS INCREASED [None]
  - BLOOD PRESSURE INCREASED [None]
